FAERS Safety Report 25672795 (Version 3)
Quarter: 2025Q4

REPORT INFORMATION
  Report Type: Spontaneous
  Country: GB (occurrence: GB)
  Receive Date: 20250812
  Receipt Date: 20251113
  Transmission Date: 20260118
  Serious: Yes (Hospitalization, Other)
  Sender: TEVA
  Company Number: None

PATIENT
  Age: 16 Year
  Sex: Male

DRUGS (12)
  1. FAMOTIDINE [Suspect]
     Active Substance: FAMOTIDINE
     Indication: Gastrooesophageal reflux disease
     Dosage: TWICE DAILY, 40MG AM, 20MG PM
     Route: 065
  2. ALFACALCIDOL [Concomitant]
     Active Substance: ALFACALCIDOL
     Indication: Product used for unknown indication
  3. LEVOFLOXACIN [Concomitant]
     Active Substance: LEVOFLOXACIN
     Indication: Product used for unknown indication
  4. LANSOPRAZOLE [Concomitant]
     Active Substance: LANSOPRAZOLE
     Indication: Product used for unknown indication
     Route: 048
  5. RIFAMPIN [Concomitant]
     Active Substance: RIFAMPIN
     Indication: Product used for unknown indication
     Route: 065
  6. VALSARTAN [Concomitant]
     Active Substance: VALSARTAN
     Indication: Product used for unknown indication
     Route: 065
  7. BISOPROLOL [Concomitant]
     Active Substance: BISOPROLOL
     Indication: Product used for unknown indication
     Route: 065
  8. ARANESP [Concomitant]
     Active Substance: DARBEPOETIN ALFA
     Indication: Product used for unknown indication
     Dosage: DOSAGE: 40 UG/(100.G)
     Route: 058
  9. CALCIUM CARBONATE [Concomitant]
     Active Substance: CALCIUM CARBONATE
     Indication: Product used for unknown indication
     Dosage: 2 DOSAGE FORMS DAILY
     Route: 065
  10. SUCRALFATE [Concomitant]
     Active Substance: SUCRALFATE
     Indication: Product used for unknown indication
     Route: 048
  11. SODIUM BICARBONATE [Concomitant]
     Active Substance: SODIUM BICARBONATE
     Indication: Product used for unknown indication
     Route: 065
  12. SACUBITRIL [Concomitant]
     Active Substance: SACUBITRIL
     Indication: Product used for unknown indication
     Route: 065

REACTIONS (9)
  - Cardiac failure [Unknown]
  - Tachycardia [Unknown]
  - Medication error [Unknown]
  - Product prescribing issue [Unknown]
  - Discoloured vomit [Unknown]
  - Dyspepsia [Unknown]
  - Unadjusted dose administered [Unknown]
  - Overdose [Unknown]
  - Product prescribing issue [Unknown]
